FAERS Safety Report 9441165 (Version 1)
Quarter: 2013Q3

REPORT INFORMATION
  Report Type: Spontaneous
  Country: IT (occurrence: None)
  Receive Date: 20130801
  Receipt Date: 20130801
  Transmission Date: 20140515
  Serious: Yes (Hospitalization)
  Sender: FDA-Public Use
  Company Number: IMP_06775_2013

PATIENT
  Age: 66 Year
  Sex: Female

DRUGS (1)
  1. METFORMIN (METFORMIN) [Suspect]
     Indication: DIABETES MELLITUS
     Dosage: DF

REACTIONS (8)
  - Cardiac arrest [None]
  - Metabolic acidosis [None]
  - Abdominal pain [None]
  - Vomiting [None]
  - Diarrhoea [None]
  - Continuous haemodiafiltration [None]
  - Renal failure acute [None]
  - Drug level above therapeutic [None]
